FAERS Safety Report 7959445-5 (Version None)
Quarter: 2011Q4

REPORT INFORMATION
  Report Type: 
  Country: None (occurrence: None)
  Receive Date: 20111206
  Receipt Date: 20111129
  Transmission Date: 20120403
  Serious: No
  Sender: FDA-Public Use
  Company Number: US-PFIZER INC-2011292335

PATIENT

DRUGS (1)
  1. VORICONAZOLE [Suspect]
     Dosage: UNK
     Route: 042

REACTIONS (1)
  - DYSPHAGIA [None]
